FAERS Safety Report 7815962-X (Version None)
Quarter: 2011Q4

REPORT INFORMATION
  Report Type: 
  Country: None (occurrence: None)
  Receive Date: 20111014
  Receipt Date: 20111006
  Transmission Date: 20120403
  Serious: Yes (Hospitalization)
  Sender: FDA-Public Use
  Company Number: JP-MERCK-1110USA01317

PATIENT
  Age: 62 Year
  Sex: Female

DRUGS (5)
  1. JANUVIA [Suspect]
     Indication: DIABETES MELLITUS
     Dosage: DIVIDED DOSE FREQUENCY UNKNOWN
     Route: 048
     Dates: start: 20110101, end: 20110101
  2. JANUVIA [Suspect]
     Dosage: DIVIDED DOSE FREQUENCY UNKNOWN
     Route: 048
     Dates: start: 20110413, end: 20110610
  3. ASPIRIN [Concomitant]
     Dosage: DAILY DOSAGE UNKNONWN
     Route: 048
  4. PLAVIX [Concomitant]
     Dosage: DAILY DOSAGE UNKNOWN
     Route: 048
  5. METFORMIN HCL [Concomitant]
     Indication: DIABETES MELLITUS
     Dosage: DAILY DOSAGE UNKNOWN
     Route: 048

REACTIONS (4)
  - WEIGHT DECREASED [None]
  - MALAISE [None]
  - COUGH [None]
  - INTERSTITIAL LUNG DISEASE [None]
